FAERS Safety Report 7597068-0 (Version None)
Quarter: 2011Q3

REPORT INFORMATION
  Report Type: 
  Country: None (occurrence: None)
  Receive Date: 20110708
  Receipt Date: 20110630
  Transmission Date: 20111222
  Serious: Yes (Other)
  Sender: FDA-Public Use
  Company Number: US-PFIZER INC-2010133756

PATIENT
  Sex: Female
  Weight: 81.633 kg

DRUGS (7)
  1. GLUCOTROL XL [Suspect]
     Dosage: UNK
  2. DIOVAN [Concomitant]
     Dosage: UNK, DAILY
     Route: 048
  3. GLUCOTROL XL [Suspect]
     Indication: TYPE 2 DIABETES MELLITUS
     Dosage: 10 MG, 2X/DAY
     Route: 048
     Dates: start: 20080101, end: 20110515
  4. AZOR [Concomitant]
     Indication: HYPERTENSION
     Dosage: 5/10 MG, DAILY
     Route: 048
  5. LASIX [Concomitant]
     Dosage: 40 MG, UNK
     Route: 048
  6. JANUVIA [Concomitant]
     Indication: BLOOD GLUCOSE INCREASED
     Dosage: 100 MG, DAILY
     Route: 048
  7. PRANDIN [Concomitant]
     Indication: BLOOD GLUCOSE INCREASED
     Dosage: 5 MG, 2X/DAY
     Route: 048

REACTIONS (7)
  - DIZZINESS [None]
  - MALAISE [None]
  - BLOOD GLUCOSE INCREASED [None]
  - CONSTIPATION [None]
  - ABDOMINAL DISCOMFORT [None]
  - DRUG INEFFECTIVE [None]
  - HEADACHE [None]
